FAERS Safety Report 8436693 (Version 2)
Quarter: 2013Q1

REPORT INFORMATION
  Report Type: Spontaneous
  Country: US (occurrence: US)
  Receive Date: 20120302
  Receipt Date: 20130314
  Transmission Date: 20140127
  Serious: No
  Sender: FDA-Public Use
  Company Number: US-BIOGENIDEC-2012BI006816

PATIENT
  Age: 37 Year
  Sex: Female

DRUGS (2)
  1. TYSABRI [Suspect]
     Indication: MULTIPLE SCLEROSIS
     Route: 042
     Dates: start: 20081204
  2. IBUPROFEN [Concomitant]
     Indication: HEADACHE

REACTIONS (8)
  - Skin mass [Not Recovered/Not Resolved]
  - Fall [Recovered/Resolved]
  - Contusion [Recovered/Resolved]
  - Vein disorder [Not Recovered/Not Resolved]
  - Infusion site paraesthesia [Recovered/Resolved]
  - Joint swelling [Recovered/Resolved]
  - Dermatitis [Not Recovered/Not Resolved]
  - Infusion site pain [Recovered/Resolved]
